FAERS Safety Report 5632246-9 (Version None)
Quarter: 2008Q1

REPORT INFORMATION
  Report Type: 
  Country: None (occurrence: None)
  Receive Date: 20080220
  Receipt Date: 20080212
  Transmission Date: 20080703
  Serious: Yes (Other)
  Sender: FDA-Public Use
  Company Number: US-ALLERGAN-0801703US

PATIENT
  Sex: Female
  Weight: 15.5 kg

DRUGS (3)
  1. BOTOX [Suspect]
     Indication: CEREBRAL PALSY
     Dosage: 200 UNITS, SINGLE
     Route: 030
     Dates: start: 20071207, end: 20071207
  2. BOTOX [Suspect]
     Indication: MUSCLE SPASTICITY
  3. VERSED [Concomitant]
     Indication: SEDATION
     Dosage: UNK, SINGLE
     Route: 045
     Dates: start: 20071207, end: 20071207

REACTIONS (10)
  - ASTHENIA [None]
  - COUGH [None]
  - DROOLING [None]
  - DYSPHAGIA [None]
  - FATIGUE [None]
  - INSOMNIA [None]
  - IRRITABILITY [None]
  - PYREXIA [None]
  - RASH [None]
  - TONGUE ULCERATION [None]
